FAERS Safety Report 23565280 (Version 1)
Quarter: 2024Q1

REPORT INFORMATION
  Report Type: Spontaneous
  Country: AT (occurrence: AT)
  Receive Date: 20240226
  Receipt Date: 20240226
  Transmission Date: 20240409
  Serious: Yes (Other)
  Sender: FDA-Public Use
  Company Number: AT-002147023-NVSC2024AT026002

PATIENT
  Age: 46 Year
  Sex: Female

DRUGS (6)
  1. PAZOPANIB [Suspect]
     Active Substance: PAZOPANIB
     Indication: Leiomyosarcoma metastatic
     Dosage: 400 MG, QD
     Route: 065
  2. GEMCITABINE [Suspect]
     Active Substance: GEMCITABINE
     Indication: Leiomyosarcoma metastatic
     Dosage: 1800 MG/M2, BIW
     Route: 065
  3. GEMCITABINE [Suspect]
     Active Substance: GEMCITABINE
     Dosage: 1000 MG/M2
     Route: 042
  4. DOXORUBICIN [Suspect]
     Active Substance: DOXORUBICIN
     Indication: Leiomyosarcoma metastatic
     Dosage: 75 MG/M2 ONCE EVERY 21 DAYS
     Route: 042
  5. DACARBAZINE [Suspect]
     Active Substance: DACARBAZINE
     Indication: Leiomyosarcoma metastatic
     Dosage: 500 MG/M2, BIW
     Route: 042
  6. TRABECTEDIN [Suspect]
     Active Substance: TRABECTEDIN
     Indication: Leiomyosarcoma metastatic
     Dosage: 1.5 MG/M2 ONCE EVERY 21 DAYS
     Route: 042

REACTIONS (4)
  - Drug intolerance [Unknown]
  - Disease progression [Unknown]
  - Drug ineffective [Unknown]
  - General physical health deterioration [Unknown]
